FAERS Safety Report 8440318-9 (Version None)
Quarter: 2012Q2

REPORT INFORMATION
  Report Type: 
  Country: None (occurrence: None)
  Receive Date: 20120615
  Receipt Date: 20120605
  Transmission Date: 20120825
  Serious: Yes (Hospitalization)
  Sender: FDA-Public Use
  Company Number: DE-SANOFI-AVENTIS-2012SA040972

PATIENT
  Age: 71 Year
  Sex: Male
  Weight: 79 kg

DRUGS (5)
  1. DOCETAXEL [Suspect]
     Route: 042
     Dates: start: 20120507, end: 20120507
  2. CALCIUM GLUBIONATE [Concomitant]
     Indication: PROPHYLAXIS
     Route: 048
     Dates: start: 20100501
  3. PREDNISONE TAB [Suspect]
     Route: 048
     Dates: start: 20120507
  4. DOCETAXEL [Suspect]
     Route: 042
     Dates: start: 20120529, end: 20120529
  5. ZOLEDRONIC ACID [Concomitant]
     Indication: PROPHYLAXIS
     Route: 042
     Dates: start: 20100501

REACTIONS (1)
  - JOINT EFFUSION [None]
